FAERS Safety Report 10587848 (Version 1)
Quarter: 2014Q4

REPORT INFORMATION
  Report Type: Spontaneous
  Country: ES (occurrence: ES)
  Receive Date: 20141117
  Receipt Date: 20141117
  Transmission Date: 20150529
  Serious: Yes (Death, Hospitalization)
  Sender: FDA-Public Use
  Company Number: ES-PFIZER INC-2014310955

PATIENT
  Age: 83 Year
  Sex: Female

DRUGS (10)
  1. SIMVASTATIN. [Concomitant]
     Active Substance: SIMVASTATIN
     Dosage: 20 MG, 1X/DAY
  2. LEVOTHYROXINE [Concomitant]
     Active Substance: LEVOTHYROXINE
     Dosage: 50 ?G, DAILY
  3. SEGURIL [Suspect]
     Active Substance: FUROSEMIDE
     Indication: CARDIAC FAILURE CONGESTIVE
     Dosage: 40 MG, 1X/DAY
     Route: 048
     Dates: start: 2011, end: 20140515
  4. SINTROM [Concomitant]
     Active Substance: ACENOCOUMAROL
     Indication: ATRIAL FIBRILLATION
     Dosage: 14 MG, WEEKLY
     Route: 048
     Dates: start: 2010, end: 20140515
  5. ARICEPT [Concomitant]
     Active Substance: DONEPEZIL HYDROCHLORIDE
     Dosage: 10 MG, 1X/DAY
  6. HALOPERIDOL. [Concomitant]
     Active Substance: HALOPERIDOL
     Dosage: UNK, AS NEEDED
  7. BISOPROLOL [Concomitant]
     Active Substance: BISOPROLOL
     Dosage: 2.5 MG, 2X/DAY
  8. OMEPRAZOLE. [Concomitant]
     Active Substance: OMEPRAZOLE
     Dosage: 40 MG, 1X/DAY
  9. ALDACTONE [Suspect]
     Active Substance: SPIRONOLACTONE
     Indication: CARDIAC FAILURE CONGESTIVE
     Dosage: 25 MG, 1X/DAY
     Route: 048
     Dates: start: 201404, end: 20140515
  10. ADIRO [Concomitant]
     Active Substance: ASPIRIN
     Dosage: 100 MG, 1X/DAY

REACTIONS (4)
  - Condition aggravated [Fatal]
  - Confusional state [Fatal]
  - Chronic kidney disease [Fatal]
  - Hyponatraemia [Fatal]

NARRATIVE: CASE EVENT DATE: 20140510
